FAERS Safety Report 5226390-8 (Version None)
Quarter: 2007Q1

REPORT INFORMATION
  Report Type: 
  Country: None (occurrence: None)
  Receive Date: 20070201
  Receipt Date: 20070122
  Transmission Date: 20070707
  Serious: Yes (Other)
  Sender: FDA-Public Use
  Company Number: JP-BRISTOL-MYERS SQUIBB COMPANY-13651559

PATIENT
  Age: 41 Year
  Sex: Male

DRUGS (5)
  1. COUMADIN [Suspect]
     Indication: ULCER
     Route: 048
     Dates: start: 20061118, end: 20061122
  2. ARGATROBAN [Suspect]
     Indication: SKIN ULCER
     Route: 041
     Dates: start: 20061020, end: 20061129
  3. ARGATROBAN [Suspect]
     Route: 041
     Dates: start: 20061123, end: 20061129
  4. ANALGESICS [Concomitant]
  5. SOLDEM 3A [Concomitant]

REACTIONS (2)
  - HEPATIC FUNCTION ABNORMAL [None]
  - OFF LABEL USE [None]
